FAERS Safety Report 4868636-1 (Version None)
Quarter: 2005Q4

REPORT INFORMATION
  Report Type: 
  Country: None (occurrence: None)
  Receive Date: 20051223
  Receipt Date: 20051215
  Transmission Date: 20060501
  Serious: Yes (Hospitalization)
  Sender: FDA-Public Use
  Company Number: SU-2005-004401

PATIENT
  Age: 67 Year
  Sex: Male
  Weight: 68.0396 kg

DRUGS (5)
  1. WELCHOL [Suspect]
     Indication: BLOOD CHOLESTEROL
     Dosage: 1875 MG BID PO
     Route: 048
     Dates: start: 20050601
  2. DIOVAN [Concomitant]
  3. HYDROCHLOROTHIAZIDE [Concomitant]
  4. ASPIRIN [Concomitant]
  5. TAR SHAMPOO [Concomitant]

REACTIONS (13)
  - ALOPECIA EFFLUVIUM [None]
  - EAR PRURITUS [None]
  - EXPOSURE TO TOXIC AGENT [None]
  - EYE INFECTION [None]
  - GASTROINTESTINAL DISORDER [None]
  - HYPOTRICHOSIS [None]
  - INSOMNIA [None]
  - LUNG DISORDER [None]
  - MADAROSIS [None]
  - RESPIRATORY TRACT IRRITATION [None]
  - SKIN BURNING SENSATION [None]
  - SKIN EXFOLIATION [None]
  - STRESS [None]
